FAERS Safety Report 8882379 (Version 2)
Quarter: 2013Q1

REPORT INFORMATION
  Report Type: Report from Study
  Country: DE (occurrence: DE)
  Receive Date: 20121102
  Receipt Date: 20130123
  Transmission Date: 20140127
  Serious: Yes (Other)
  Sender: FDA-Public Use
  Company Number: DE-OTSUKA-EU-2011-10169

PATIENT
  Sex: Male
  Weight: 67 kg

DRUGS (16)
  1. SAMSCA [Suspect]
     Indication: HYPONATRAEMIA
     Dosage: 7.5 MG MILLIGRAM(S), DAILY DOSE
     Route: 048
     Dates: start: 20110510, end: 20110511
  2. NATRILIX [Concomitant]
     Indication: HYPERTENSION
     Dosage: 125 MG MILLIGRAM(S), DAILY DOSE
     Route: 048
     Dates: start: 2011, end: 20110509
  3. PENTALONG [Concomitant]
     Indication: HYPERTENSION
     Dosage: 80 MG MILLIGRAM(S), DAILY DOSE
     Route: 048
     Dates: start: 2011
  4. RAMIPRIL [Concomitant]
     Indication: HYPERTENSION
     Dosage: 5 MG MILLIGRAM(S), DAILY DOSE
     Route: 048
     Dates: start: 2011
  5. PANTOPRAZOLE SODIUM [Concomitant]
     Indication: PROPHYLAXIS AGAINST GASTROINTESTINAL ULCER
     Dosage: 40 MG MILLIGRAM(S), DAILY DOSE
     Route: 048
     Dates: start: 2011
  6. PROCORALAN [Concomitant]
     Dosage: 125 MG MILLIGRAM(S), DAILY DOSE
     Route: 048
     Dates: start: 2011
  7. KALINOR [Concomitant]
     Indication: HYPOKALAEMIA
     Dosage: 2 DF DOSAGE FORM, DAILY DOSE
     Route: 048
     Dates: start: 2011
  8. PREDNISOLON [Concomitant]
     Indication: CHRONIC OBSTRUCTIVE PULMONARY DISEASE
     Dosage: 20 MG MILLIGRAM(S), DAILY DOSE
     Route: 048
     Dates: start: 20110507
  9. IBUPROFEN [Concomitant]
     Indication: PAIN
     Dosage: 1800 MG MILLIGRAM(S), DAILY DOSE
     Route: 048
     Dates: start: 20110508, end: 20110510
  10. IBUPROFEN [Concomitant]
     Indication: PLEURISY
  11. NOVALGIN [Concomitant]
     Indication: PAIN
     Dosage: 120 GTT DROP(S), DAILY DOSE
     Route: 048
     Dates: start: 201104, end: 20110512
  12. NOVALGIN [Concomitant]
     Indication: PLEURISY
  13. BRICANYL [Concomitant]
     Indication: CHRONIC OBSTRUCTIVE PULMONARY DISEASE
     Dosage: 1.5 DF DOSAGE FORM, DAILY DOSE
     Route: 058
     Dates: start: 20110507
  14. MOVICOL [Concomitant]
     Indication: CONSTIPATION
     Dosage: 3 DF DOSAGE FORM, DAILY DOSE
     Route: 048
     Dates: start: 20110509
  15. CLEXANE [Concomitant]
     Indication: THROMBOSIS PROPHYLAXIS
     Dosage: 40 IU, DAILY DOSE
     Route: 058
     Dates: start: 201104
  16. AVALOX [Concomitant]
     Indication: PNEUMONIA
     Dosage: 400 MG MILLIGRAM(S), DAILY DOSE
     Route: 048
     Dates: start: 20110509

REACTIONS (3)
  - Blood sodium decreased [Recovered/Resolved]
  - Rapid correction of hyponatraemia [Recovered/Resolved]
  - Wrong technique in drug usage process [Unknown]
